FAERS Safety Report 24198394 (Version 1)
Quarter: 2024Q3

REPORT INFORMATION
  Report Type: Spontaneous
  Country: US (occurrence: US)
  Receive Date: 20240812
  Receipt Date: 20240812
  Transmission Date: 20241017
  Serious: Yes (Other)
  Sender: BRISTOL MYERS SQUIBB
  Company Number: US-BRISTOL-MYERS SQUIBB COMPANY-2024-123444

PATIENT
  Age: 77 Year
  Sex: Male

DRUGS (1)
  1. REBLOZYL [Suspect]
     Active Substance: LUSPATERCEPT-AAMT
     Indication: Anaemia
     Dosage: STRENGTH: 75 MG VIAL?STRENGTH: 25 MG VIAL
     Route: 058
     Dates: start: 20240223

REACTIONS (2)
  - Pyrexia [Unknown]
  - Sepsis [Unknown]

NARRATIVE: CASE EVENT DATE: 20240801
